FAERS Safety Report 4707414-0 (Version None)
Quarter: 2005Q3

REPORT INFORMATION
  Report Type: 
  Country: None (occurrence: None)
  Receive Date: 20050706
  Receipt Date: 20050616
  Transmission Date: 20060218
  Serious: Yes (Life-Threatening, Hospitalization)
  Sender: FDA-Public Use
  Company Number: 2005AC00908

PATIENT
  Age: 667 Month
  Sex: Male
  Weight: 67 kg

DRUGS (4)
  1. CRESTOR [Suspect]
     Indication: HYPERCHOLESTEROLAEMIA
     Route: 048
     Dates: start: 20040801
  2. CRESTOR [Suspect]
     Route: 048
     Dates: start: 20050301, end: 20050615
  3. ASPIRIN [Concomitant]
     Indication: PROPHYLAXIS
     Route: 048
  4. TOLBUTAMIDE [Concomitant]
     Indication: DIABETES MELLITUS
     Dates: start: 20040101

REACTIONS (2)
  - GRAND MAL CONVULSION [None]
  - HYPOAESTHESIA [None]
